FAERS Safety Report 5017801-1 (Version None)
Quarter: 2006Q2

REPORT INFORMATION
  Report Type: 
  Country: None (occurrence: None)
  Receive Date: 20060530
  Receipt Date: 20050323
  Transmission Date: 20061013
  Serious: Yes (Hospitalization)
  Sender: FDA-Public Use
  Company Number: 2005048511

PATIENT
  Sex: Female
  Weight: 57 kg

DRUGS (4)
  1. LYRICA [Suspect]
     Indication: NEURALGIA
     Dosage: 150 MG (75 MG, 2 IN 1 D), ORAL
     Route: 048
     Dates: start: 20050211, end: 20050212
  2. BISOPROLOL [Concomitant]
  3. FENTANYL [Concomitant]
  4. SALUTEC (HYDROCHLOROTHIAZIDE, RAMIPRIL) [Concomitant]

REACTIONS (4)
  - AREFLEXIA [None]
  - BLOOD CREATININE INCREASED [None]
  - BLOOD POTASSIUM DECREASED [None]
  - PARAPLEGIA [None]
